FAERS Safety Report 17702586 (Version 4)
Quarter: 2020Q2

REPORT INFORMATION
  Report Type: Spontaneous
  Country: IT (occurrence: IT)
  Receive Date: 20200424
  Receipt Date: 20200520
  Transmission Date: 20200714
  Serious: Yes (Disabling, Other)
  Sender: FDA-Public Use
  Company Number: IT-009507513-1710ITA013216

PATIENT
  Age: 23 Year
  Sex: Male

DRUGS (2)
  1. PROPECIA [Suspect]
     Active Substance: FINASTERIDE
     Indication: ANDROGENETIC ALOPECIA
     Dosage: UNK
     Route: 048
  2. PROPECIA [Suspect]
     Active Substance: FINASTERIDE
     Dosage: 1 MILLIGRAM
     Route: 048
     Dates: start: 201209, end: 201402

REACTIONS (7)
  - Asthenia [Unknown]
  - Erectile dysfunction [Unknown]
  - Self esteem decreased [Unknown]
  - Adverse drug reaction [Unknown]
  - Anxiety [Unknown]
  - Depression [Unknown]
  - Libido decreased [Unknown]
